FAERS Safety Report 20831531 (Version 1)
Quarter: 2022Q2

REPORT INFORMATION
  Report Type: Spontaneous
  Country: JP (occurrence: JP)
  Receive Date: 20220516
  Receipt Date: 20220516
  Transmission Date: 20220721
  Serious: Yes (Other)
  Sender: FDA-Public Use
  Company Number: JP-NOVARTISPH-NVSJ2022JP090061

PATIENT
  Age: 51 Year
  Sex: Female

DRUGS (1)
  1. PAZOPANIB [Suspect]
     Active Substance: PAZOPANIB
     Indication: Sarcoma uterus
     Dosage: UNK
     Route: 065

REACTIONS (5)
  - Metastases to central nervous system [Unknown]
  - Malignant neoplasm progression [Unknown]
  - Sarcoma uterus [Unknown]
  - Intestinal perforation [Unknown]
  - Female genital tract fistula [Unknown]
